FAERS Safety Report 5179626-6 (Version None)
Quarter: 2006Q4

REPORT INFORMATION
  Report Type: 
  Country: None (occurrence: None)
  Receive Date: 20061219
  Receipt Date: 20061205
  Transmission Date: 20070319
  Serious: Yes (Other)
  Sender: FDA-Public Use
  Company Number: CA-ELI_LILLY_AND_COMPANY-CA200612001794

PATIENT
  Age: 76 Year
  Sex: Female

DRUGS (15)
  1. FORTEO [Suspect]
     Indication: OSTEOPOROSIS
     Dosage: 20 UG, DAILY (1/D)
     Route: 058
     Dates: start: 20060130
  2. KETOPROFEN [Concomitant]
  3. OXYBUTYNIN [Concomitant]
  4. QUININE SULFATE [Concomitant]
  5. ACETYLSALICYLIC ACID SRT [Concomitant]
  6. LISINOPRIL [Concomitant]
  7. AMITRIPTYLINE HCL [Concomitant]
  8. OXAZEPAM [Concomitant]
  9. BISACODYL [Concomitant]
  10. OXYCODONE W/PARACETAMOL [Concomitant]
  11. OXYCODONE HCL [Concomitant]
  12. METOPROLOL SUCCINATE [Concomitant]
  13. NIFEDIPINE [Concomitant]
  14. IPRATROPIUM BROMIDE [Concomitant]
  15. PENTOXIFYLLINE [Concomitant]

REACTIONS (1)
  - RIB FRACTURE [None]
